FAERS Safety Report 10146430 (Version 1)
Quarter: 2014Q2

REPORT INFORMATION
  Report Type: Spontaneous
  Country: US (occurrence: None)
  Receive Date: 20140429
  Receipt Date: 20140429
  Transmission Date: 20141212
  Serious: Yes (Other)
  Sender: FDA-Public Use
  Company Number: IPC201404-000177

PATIENT
  Age: 51 Year
  Sex: Female

DRUGS (9)
  1. METFORMIN HYDROCHLORIDE [Suspect]
     Dosage: STOPPED
  2. GABAPENTIN [Suspect]
  3. GLYBURIDE [Suspect]
     Dosage: STOPPED
  4. TRUVADA (TENOFOVIR/EMTRICITABINE) [Concomitant]
  5. DARUNAVIR [Concomitant]
  6. ASPIRIN [Concomitant]
  7. TRAZODONE [Concomitant]
  8. RITONAVIR [Concomitant]
  9. BACLOFEN (BACLOFEN) (BACLOFEN) [Concomitant]

REACTIONS (2)
  - Drug-induced liver injury [None]
  - Hepatitis [None]
